FAERS Safety Report 19779457 (Version 1)
Quarter: 2021Q3

REPORT INFORMATION
  Report Type: Spontaneous
  Country: US (occurrence: US)
  Receive Date: 20210902
  Receipt Date: 20210902
  Transmission Date: 20211014
  Serious: Yes (Hospitalization)
  Sender: FDA-Public Use
  Company Number: US-SA-2021SA284967

PATIENT
  Age: 78 Year
  Sex: Female
  Weight: 54.4 kg

DRUGS (6)
  1. REMODULIN [Suspect]
     Active Substance: TREPROSTINIL
     Dosage: CONTINUING
     Route: 041
  2. WARFARIN SODIUM. [Concomitant]
     Active Substance: WARFARIN SODIUM
  3. REVATIO [Concomitant]
     Active Substance: SILDENAFIL CITRATE
  4. LOVENOX [Suspect]
     Active Substance: ENOXAPARIN SODIUM
     Indication: PRODUCT USED FOR UNKNOWN INDICATION
     Route: 065
     Dates: start: 2021
  5. REMODULIN [Suspect]
     Active Substance: TREPROSTINIL
     Indication: PULMONARY ARTERIAL HYPERTENSION
     Dosage: 5 MG/ML
     Route: 041
     Dates: start: 20170120
  6. BOSENTAN. [Concomitant]
     Active Substance: BOSENTAN

REACTIONS (4)
  - Haematoma [Unknown]
  - Upper limb fracture [Unknown]
  - Fall [Recovered/Resolved with Sequelae]
  - Injury [Unknown]

NARRATIVE: CASE EVENT DATE: 20210727
